FAERS Safety Report 10203729 (Version 2)
Quarter: 2014Q2

REPORT INFORMATION
  Report Type: Spontaneous
  Country: US (occurrence: US)
  Receive Date: 20140529
  Receipt Date: 20140611
  Transmission Date: 20141212
  Serious: Yes (Other)
  Sender: FDA-Public Use
  Company Number: US-RB-066313-14

PATIENT
  Age: 41 Year
  Sex: Female

DRUGS (1)
  1. DELSYM UNIDENTIFIED [Suspect]
     Indication: COUGH
     Dosage: PATIENT TOOK THE PRODUCT TWICE; USED 1 DOSING CUP BY MOUTH AT 6 PM AND SAME DOSE AT 10:30 PM
     Route: 048

REACTIONS (9)
  - Syncope [Recovering/Resolving]
  - Throat irritation [Recovering/Resolving]
  - Oropharyngeal pain [Recovering/Resolving]
  - Malaise [Recovered/Resolved]
  - Feeling abnormal [Recovering/Resolving]
  - Feeling drunk [Recovering/Resolving]
  - Drug ineffective [Not Recovered/Not Resolved]
  - Vomiting [Recovered/Resolved]
  - Dizziness [Recovering/Resolving]
